FAERS Safety Report 13659177 (Version 1)
Quarter: 2017Q2

REPORT INFORMATION
  Report Type: Spontaneous
  Country: BR (occurrence: BR)
  Receive Date: 20170616
  Receipt Date: 20170616
  Transmission Date: 20170830
  Serious: Yes (Life-Threatening, Hospitalization, Other)
  Sender: FDA-Public Use
  Company Number: BR-JNJFOC-20170612452

PATIENT
  Sex: Male

DRUGS (1)
  1. HALDOL DECANOATE [Suspect]
     Active Substance: HALOPERIDOL DECANOATE
     Indication: BIPOLAR DISORDER
     Route: 065

REACTIONS (4)
  - Intentional self-injury [Unknown]
  - Product use in unapproved indication [Unknown]
  - Bipolar disorder [Not Recovered/Not Resolved]
  - Off label use [Unknown]
